FAERS Safety Report 6888121-5 (Version None)
Quarter: 2010Q3

REPORT INFORMATION
  Report Type: 
  Country: None (occurrence: None)
  Receive Date: 20100730
  Receipt Date: 20100728
  Transmission Date: 20110219
  Serious: Yes (Hospitalization, Other)
  Sender: FDA-Public Use
  Company Number: FR-CEPHALON-2010003953

PATIENT
  Sex: Female

DRUGS (10)
  1. MODAFINIL [Suspect]
     Indication: HYPERSOMNIA
     Route: 048
     Dates: start: 20100101
  2. CIFLOX [Suspect]
     Indication: INFECTION
     Dates: start: 20100602, end: 20100611
  3. MEMANTINE HCL [Suspect]
     Indication: DEMENTIA
     Route: 048
     Dates: start: 20100605, end: 20100628
  4. TAREG [Suspect]
     Indication: HYPERTENSION
     Route: 048
     Dates: end: 20100609
  5. NEXIUM [Suspect]
     Route: 048
     Dates: end: 20100628
  6. ACETAMINOPHEN [Suspect]
     Route: 048
     Dates: end: 20100628
  7. FERROSTRANE [Suspect]
  8. CACIT VITAMIN D3 [Suspect]
  9. TRIVASTAL [Suspect]
  10. STABLON [Suspect]
     Route: 048

REACTIONS (6)
  - BRONCHOPNEUMOPATHY [None]
  - CYTOLYTIC HEPATITIS [None]
  - GENERAL PHYSICAL HEALTH DETERIORATION [None]
  - MUSCLE RIGIDITY [None]
  - PYREXIA [None]
  - URINARY TRACT INFECTION [None]
